FAERS Safety Report 5339156-5 (Version None)
Quarter: 2007Q2

REPORT INFORMATION
  Report Type: 
  Country: None (occurrence: None)
  Receive Date: 20070530
  Receipt Date: 20070529
  Transmission Date: 20071010
  Serious: Yes (Death)
  Sender: FDA-Public Use
  Company Number: ES-BOEHRINGER INGELHEIM PHARMACEUTICALS, INC.-2007-ES-00078ES

PATIENT
  Age: 88 Year
  Sex: Male
  Weight: 66 kg

DRUGS (7)
  1. SPIRIVA [Suspect]
     Indication: CHRONIC OBSTRUCTIVE PULMONARY DISEASE
     Route: 055
     Dates: start: 20070301, end: 20070314
  2. PRISDAL [Suspect]
     Indication: DYSTHYMIC DISORDER
     Route: 048
     Dates: start: 20070306, end: 20070314
  3. PRISDAL [Concomitant]
     Route: 048
     Dates: start: 20070302, end: 20070305
  4. ORFIDAL [Concomitant]
     Indication: INSOMNIA
     Route: 048
     Dates: start: 20050301, end: 20050314
  5. SEREVENT [Concomitant]
     Indication: CHRONIC OBSTRUCTIVE PULMONARY DISEASE
     Route: 055
     Dates: start: 20041201, end: 20070314
  6. OMEPRAZOLE [Concomitant]
     Route: 048
     Dates: start: 20041201, end: 20070314
  7. DACORTIN [Concomitant]
     Indication: POLYMYALGIA RHEUMATICA
     Route: 048
     Dates: start: 20030501, end: 20070314

REACTIONS (1)
  - SUICIDE ATTEMPT [None]
